FAERS Safety Report 25640125 (Version 1)
Quarter: 2025Q3

REPORT INFORMATION
  Report Type: Spontaneous
  Country: BR (occurrence: BR)
  Receive Date: 20250804
  Receipt Date: 20250804
  Transmission Date: 20251021
  Serious: Yes (Hospitalization)
  Sender: PFIZER
  Company Number: BR-PFIZER INC-202500155641

PATIENT
  Age: 60 Year
  Sex: Female

DRUGS (1)
  1. BRAFTOVI [Suspect]
     Active Substance: ENCORAFENIB
     Dosage: 300 MG, DAILY

REACTIONS (2)
  - Acute kidney injury [Recovering/Resolving]
  - Conjunctival haemorrhage [Recovered/Resolved]
